FAERS Safety Report 9301523 (Version 1)
Quarter: 2013Q2

REPORT INFORMATION
  Report Type: Spontaneous
  Country: PL (occurrence: PL)
  Receive Date: 20130521
  Receipt Date: 20130521
  Transmission Date: 20140414
  Serious: Yes (Other)
  Sender: FDA-Public Use
  Company Number: PL-PFIZER INC-2013107170

PATIENT
  Age: 66 Year
  Sex: Female

DRUGS (6)
  1. SOLU-MEDROL [Suspect]
     Indication: IMMUNOSUPPRESSANT DRUG THERAPY
     Dosage: UNK
     Route: 042
  2. CYCLOPHOSPHAMIDE [Suspect]
     Indication: SYSTEMIC LUPUS ERYTHEMATOSUS
     Dosage: 4-WEEK INTERVALS (TOTAL DOSE OF CYCLOPHOSPHAMIDE 4.0 G)
     Route: 042
  3. CYCLOPHOSPHAMIDE [Suspect]
     Indication: IMMUNOSUPPRESSANT DRUG THERAPY
     Dosage: 3.0 G WAS ADMINISTERED IN THIS CYCLE
     Route: 042
  4. AZATHIOPRINE [Suspect]
     Indication: SYSTEMIC LUPUS ERYTHEMATOSUS
     Dosage: UNK
  5. PREDNISONE [Suspect]
     Indication: SYSTEMIC LUPUS ERYTHEMATOSUS
     Dosage: 10-25 MG/DAY
  6. PREDNISONE [Suspect]
     Dosage: 10 MG/DAY

REACTIONS (2)
  - Acute monocytic leukaemia [Unknown]
  - Pancytopenia [Unknown]
